FAERS Safety Report 6994300-9 (Version None)
Quarter: 2010Q3

REPORT INFORMATION
  Report Type: 
  Country: None (occurrence: None)
  Receive Date: 20100917
  Receipt Date: 20100106
  Transmission Date: 20110219
  Serious: Yes (Hospitalization)
  Sender: FDA-Public Use
  Company Number: GB-PURDUE-GBR-2004-0001030

PATIENT
  Sex: Female

DRUGS (14)
  1. BLINDED CODE BROKEN OXY CR TAB 10 MG [Suspect]
     Dates: start: 20040331
  2. BLINDED CODE BROKEN OXY CR TAB 20 MG [Suspect]
     Dates: start: 20040331
  3. BLINDED CODE BROKEN OXY CR TAB 40 MG [Suspect]
     Dates: start: 20040331
  4. BLINDED CODE BROKEN OXY CR TAB 5 MG [Suspect]
     Dates: start: 20040331
  5. BLINDED OXY CR TAB [Suspect]
     Dates: start: 20040331
  6. BLINDED PLACEBO [Suspect]
     Dates: start: 20040331
  7. BECODISK [Concomitant]
     Indication: ASTHMA
     Dosage: 400 MCG, DAILY
     Route: 055
     Dates: start: 19940101
  8. VENTOLIN DISKUS [Concomitant]
     Indication: ASTHMA
     Dosage: 200 MCG, DAILY
     Route: 055
     Dates: start: 19940101
  9. NOVOMIX                            /01475801/ [Concomitant]
     Indication: DIABETES MELLITUS
     Dosage: 62 UNIT, DAILY
     Route: 058
     Dates: start: 20031001
  10. AMITRIPTYLINE HCL [Concomitant]
     Indication: NEURALGIA
     Dosage: 25 MG, DAILY
     Route: 048
     Dates: start: 20031001
  11. NORETHINDRONE ACETATE AND ETHINYL ESTRADIOL [Concomitant]
     Dosage: 1 TABLET, DAILY
     Route: 048
     Dates: start: 19960930
  12. LISINOPRIL [Concomitant]
     Indication: HYPERTENSION
     Dosage: 5 MG, DAILY
     Route: 048
     Dates: start: 20031001
  13. GABAPENTIN [Concomitant]
     Indication: NEURALGIA
     Dosage: 900 MG, DAILY
     Route: 048
     Dates: start: 20040216
  14. VALSARTAN [Concomitant]
     Indication: HYPERTENSION
     Dosage: 80 MG, DAILY
     Route: 048
     Dates: start: 20040101

REACTIONS (1)
  - CEREBROVASCULAR ACCIDENT [None]
